FAERS Safety Report 7802960-5 (Version None)
Quarter: 2011Q4

REPORT INFORMATION
  Report Type: 
  Country: None (occurrence: None)
  Receive Date: 20111007
  Receipt Date: 20110926
  Transmission Date: 20120403
  Serious: Yes (Other)
  Sender: FDA-Public Use
  Company Number: UY-CELGENEUS-168-50794-11082479

PATIENT
  Age: 61 Year
  Sex: Female

DRUGS (3)
  1. VIDAZA [Suspect]
     Dosage: 125 MILLIGRAM
     Route: 065
     Dates: start: 20100625, end: 20110501
  2. VIDAZA [Suspect]
     Dosage: 100 MILLIGRAM
     Route: 065
     Dates: start: 20110714, end: 20110905
  3. VIDAZA [Suspect]
     Dosage: 100 MILLIGRAM
     Route: 065
     Dates: start: 20110504

REACTIONS (4)
  - PLATELET COUNT DECREASED [None]
  - BONE MARROW TOXICITY [None]
  - NEUTROPHIL COUNT DECREASED [None]
  - HAEMOGLOBIN DECREASED [None]
